FAERS Safety Report 5680948-0 (Version None)
Quarter: 2008Q1

REPORT INFORMATION
  Report Type: 
  Country: None (occurrence: None)
  Receive Date: 20080326
  Receipt Date: 20080314
  Transmission Date: 20080703
  Serious: Yes (Hospitalization, Other)
  Sender: FDA-Public Use
  Company Number: NL-PFIZER INC-2008013863

PATIENT
  Sex: Male

DRUGS (9)
  1. CHAMPIX [Suspect]
     Indication: SMOKING CESSATION THERAPY
     Route: 048
     Dates: start: 20070412, end: 20070416
  2. SOTALOL [Concomitant]
  3. DIGOXIN [Concomitant]
  4. CLOPIDOGREL [Concomitant]
  5. OXAZEPAM [Concomitant]
  6. ACENOCOUMAROL [Concomitant]
  7. PANTOPRAZOLE SODIUM [Concomitant]
  8. ATORVASTATIN CALCIUM [Concomitant]
  9. LISINOPRIL [Concomitant]

REACTIONS (1)
  - CARDIAC DISORDER [None]
